FAERS Safety Report 22145906 (Version 1)
Quarter: 2023Q1

REPORT INFORMATION
  Report Type: Report from Study
  Country: CA (occurrence: CA)
  Receive Date: 20230328
  Receipt Date: 20230328
  Transmission Date: 20230418
  Serious: Yes (Other)
  Sender: FDA-Public Use
  Company Number: CA-MYLANLABS-2022M1139996

PATIENT
  Sex: Female
  Weight: 70 kg

DRUGS (4)
  1. CELEBREX [Suspect]
     Active Substance: CELECOXIB
     Indication: Ankylosing spondylitis
     Dosage: 200 MILLIGRAM, BID AS NEEDED
     Route: 065
  2. ENBREL [Suspect]
     Active Substance: ETANERCEPT
     Indication: Ankylosing spondylitis
     Dosage: 50 MILLIGRAM, QW
     Route: 065
     Dates: start: 2005, end: 20230306
  3. HUMIRA [Concomitant]
     Active Substance: ADALIMUMAB
     Dosage: UNK
     Route: 065
  4. KENALOG [Concomitant]
     Active Substance: TRIAMCINOLONE ACETONIDE
     Dosage: 10 MILLIGRAM
     Route: 065

REACTIONS (14)
  - Ankylosing spondylitis [Unknown]
  - Headache [Unknown]
  - Neck pain [Unknown]
  - Constipation [Unknown]
  - Memory impairment [Unknown]
  - Back pain [Unknown]
  - Plantar fasciitis [Unknown]
  - Iritis [Unknown]
  - Arthralgia [Unknown]
  - Diarrhoea [Unknown]
  - Dyspepsia [Unknown]
  - Insomnia [Unknown]
  - Rash [Unknown]
  - Drug ineffective [Unknown]
